FAERS Safety Report 4677731-1 (Version None)
Quarter: 2005Q2

REPORT INFORMATION
  Report Type: 
  Country: None (occurrence: None)
  Receive Date: 20050526
  Receipt Date: 20050526
  Transmission Date: 20051028
  Serious: Yes (Hospitalization)
  Sender: FDA-Public Use
  Company Number: None

PATIENT
  Age: 71 Year
  Sex: Female
  Weight: 75.7507 kg

DRUGS (1)
  1. LIPITOR [Suspect]
     Indication: BLOOD CHOLESTEROL INCREASED
     Dosage: 10 MG ORAL , DAILY
     Route: 048
     Dates: start: 20050102

REACTIONS (3)
  - DISORIENTATION [None]
  - MEMORY IMPAIRMENT [None]
  - MUSCLE SPASMS [None]
